FAERS Safety Report 5495460-1 (Version None)
Quarter: 2007Q4

REPORT INFORMATION
  Report Type: 
  Country: None (occurrence: None)
  Receive Date: 20071023
  Receipt Date: 20071017
  Transmission Date: 20080405
  Serious: Yes (Life-Threatening, Hospitalization, Other)
  Sender: FDA-Public Use
  Company Number: 163-21880-07080791

PATIENT
  Age: 54 Year
  Sex: Female

DRUGS (6)
  1. REVLIMID [Suspect]
     Indication: MULTIPLE MYELOMA
     Dosage: 25 MG, QD X 21 DAYS, ORAL; 25 MG, QD X 21 DAYS, ORAL
     Route: 048
     Dates: start: 20070605, end: 20070626
  2. REVLIMID [Suspect]
     Indication: MULTIPLE MYELOMA
     Dosage: 25 MG, QD X 21 DAYS, ORAL; 25 MG, QD X 21 DAYS, ORAL
     Route: 048
     Dates: start: 20070703
  3. ASPIRIN [Suspect]
     Indication: DRUG USE FOR UNKNOWN INDICATION
     Dosage: 81 MG
     Dates: start: 20070614, end: 20070824
  4. LOVENOX [Suspect]
     Indication: PROPHYLAXIS
     Dates: start: 20070724
  5. DECADRON [Concomitant]
  6. SENOKOT [Concomitant]

REACTIONS (7)
  - ASTHENIA [None]
  - BACK PAIN [None]
  - DIARRHOEA [None]
  - HAEMORRHAGE INTRACRANIAL [None]
  - HYPERCALCAEMIA [None]
  - PYREXIA [None]
  - SEPSIS [None]
